FAERS Safety Report 13040693 (Version 1)
Quarter: 2016Q4

REPORT INFORMATION
  Report Type: Spontaneous
  Country: US (occurrence: US)
  Receive Date: 20161219
  Receipt Date: 20161219
  Transmission Date: 20170207
  Serious: No
  Sender: FDA-Public Use
  Company Number: None

PATIENT

DRUGS (1)
  1. FLUORESCEIN SODIUM OPTHALMIC AKORN [Suspect]
     Active Substance: FLUORESCEIN SODIUM
     Dosage: ?          OTHER FREQUENCY:ONE TIME USE;?
     Route: 047

REACTIONS (1)
  - Product label confusion [None]

NARRATIVE: CASE EVENT DATE: 20161219
